FAERS Safety Report 24647288 (Version 1)
Quarter: 2024Q4

REPORT INFORMATION
  Report Type: Spontaneous
  Country: GB (occurrence: GB)
  Receive Date: 20241121
  Receipt Date: 20241121
  Transmission Date: 20250115
  Serious: Yes (Other)
  Sender: TEVA
  Company Number: None

PATIENT
  Age: 40 Year
  Sex: Female
  Weight: 85 kg

DRUGS (4)
  1. BACLOFEN [Suspect]
     Active Substance: BACLOFEN
     Indication: Muscle tightness
     Dosage: 20 MG QID
     Route: 065
     Dates: start: 20210517
  2. OXYCODONE [Concomitant]
     Active Substance: OXYCODONE
     Indication: Pain in extremity
     Dates: start: 20210517
  3. PEPCID [Concomitant]
     Active Substance: FAMOTIDINE
     Indication: Dyspepsia
     Dates: start: 20220203
  4. GABAPENTIN [Concomitant]
     Active Substance: GABAPENTIN
     Indication: Neuropathy peripheral
     Dates: start: 20211008

REACTIONS (1)
  - Muscle tightness [Not Recovered/Not Resolved]

NARRATIVE: CASE EVENT DATE: 20231208
